FAERS Safety Report 24660950 (Version 1)
Quarter: 2024Q4

REPORT INFORMATION
  Report Type: Spontaneous
  Country: US (occurrence: US)
  Receive Date: 20241125
  Receipt Date: 20241125
  Transmission Date: 20250115
  Serious: No
  Sender: AVADEL CNS PHARMACEUTICALS, LLC
  Company Number: US-AVADEL CNS PHARMACEUTICALS, LLC-2024AVA02065

PATIENT
  Age: 42 Year
  Sex: Male

DRUGS (17)
  1. LUMRYZ [Suspect]
     Active Substance: SODIUM OXYBATE
     Indication: Narcolepsy
     Dosage: 4.5 G, 1X/DAY
     Dates: start: 20241014, end: 20241020
  2. LUMRYZ [Suspect]
     Active Substance: SODIUM OXYBATE
     Indication: Narcolepsy
     Dosage: 6 G, 1X/DAY
     Dates: start: 20241021
  3. WAKIX [Concomitant]
     Active Substance: PITOLISANT HYDROCHLORIDE
  4. ACETYLCYSTEINE [Concomitant]
     Active Substance: ACETYLCYSTEINE
  5. MOUNJARO [Concomitant]
     Active Substance: TIRZEPATIDE
  6. VALTREX [Concomitant]
     Active Substance: VALACYCLOVIR HYDROCHLORIDE
  7. L-METHYLFOLATE CALCIUM [CALCIUM LEVOMEFOLATE] [Concomitant]
  8. CREATINE [Concomitant]
     Active Substance: CREATINE
  9. FISH OIL [Concomitant]
     Active Substance: FISH OIL
  10. WELLBUTRIN SR [Concomitant]
     Active Substance: BUPROPION HYDROCHLORIDE
  11. VITAMIN B12 [Concomitant]
     Active Substance: CYANOCOBALAMIN
  12. MAGNESIUM [Concomitant]
     Active Substance: MAGNESIUM
  13. NALTREXONE HYDROCHLORIDE [Concomitant]
     Active Substance: NALTREXONE HYDROCHLORIDE
  14. VITAMIN D2 [Concomitant]
     Active Substance: ERGOCALCIFEROL
  15. MODAFINIL [Concomitant]
     Active Substance: MODAFINIL
  16. VITAMIN K [Concomitant]
     Active Substance: PHYTONADIONE
  17. CLOMID [Concomitant]
     Active Substance: CLOMIPHENE CITRATE

REACTIONS (2)
  - Sleep disorder [Not Recovered/Not Resolved]
  - Somnolence [Not Recovered/Not Resolved]

NARRATIVE: CASE EVENT DATE: 20241001
